FAERS Safety Report 7875174-0 (Version None)
Quarter: 2011Q4

REPORT INFORMATION
  Report Type: 
  Country: None (occurrence: None)
  Receive Date: 20111031
  Receipt Date: 20111019
  Transmission Date: 20120403
  Serious: No
  Sender: FDA-Public Use
  Company Number: US-BIOGENIDEC-2011BI040291

PATIENT
  Age: 35 Year
  Sex: Female

DRUGS (3)
  1. AVONEX [Suspect]
     Indication: MULTIPLE SCLEROSIS
     Route: 030
     Dates: start: 20110527, end: 20111013
  2. PREDNISONE [Concomitant]
     Indication: PREMEDICATION
  3. BLOOD PRESSURE PILL (NOS) [Concomitant]
     Indication: HYPERTENSION
     Dates: start: 20020101

REACTIONS (6)
  - MUSCLE SPASMS [None]
  - ARTHRALGIA [None]
  - INJURY ASSOCIATED WITH DEVICE [None]
  - HEADACHE [None]
  - INFLUENZA LIKE ILLNESS [None]
  - VOMITING PROJECTILE [None]
